FAERS Safety Report 26141189 (Version 2)
Quarter: 2025Q4

REPORT INFORMATION
  Report Type: Spontaneous
  Country: US (occurrence: US)
  Receive Date: 20251210
  Receipt Date: 20251214
  Transmission Date: 20260117
  Serious: No
  Sender: ABBVIE
  Company Number: US-ABBVIE-6583594

PATIENT
  Sex: Female
  Weight: 58.966 kg

DRUGS (1)
  1. SYNTHROID [Suspect]
     Active Substance: LEVOTHYROXINE SODIUM
     Indication: Hypothyroidism
     Dosage: UNKNOWN
     Route: 048

REACTIONS (5)
  - Bone pain [Not Recovered/Not Resolved]
  - Drug hypersensitivity [Unknown]
  - Pain in extremity [Unknown]
  - Gastrointestinal disorder [Not Recovered/Not Resolved]
  - Throat tightness [Not Recovered/Not Resolved]
